FAERS Safety Report 10253309 (Version 2)
Quarter: 2014Q2

REPORT INFORMATION
  Report Type: Spontaneous
  Country: US (occurrence: US)
  Receive Date: 20140623
  Receipt Date: 20140623
  Transmission Date: 20141212
  Serious: No
  Sender: FDA-Public Use
  Company Number: US-SHIONOGI, INC-2014000118

PATIENT
  Sex: 0

DRUGS (3)
  1. OSPHENA [Suspect]
     Indication: DEVICE ISSUE
     Dosage: UNK, QD
     Route: 065
     Dates: start: 20131220
  2. OSPHENA [Suspect]
     Indication: OFF LABEL USE
  3. OSPHENA [Suspect]
     Indication: ATROPHIC VULVOVAGINITIS

REACTIONS (2)
  - Off label use [Unknown]
  - No adverse event [Unknown]
